FAERS Safety Report 21237923 (Version 5)
Quarter: 2023Q4

REPORT INFORMATION
  Report Type: Spontaneous
  Country: DK (occurrence: DK)
  Receive Date: 20220822
  Receipt Date: 20231204
  Transmission Date: 20240110
  Serious: Yes (Hospitalization, Other)
  Sender: FDA-Public Use
  Company Number: DK-Accord-270398

PATIENT
  Age: 68 Year
  Sex: Male
  Weight: 106.6 kg

DRUGS (28)
  1. OXALIPLATIN [Suspect]
     Active Substance: OXALIPLATIN
     Indication: Diffuse large B-cell lymphoma stage I
     Dosage: 100 MILLIGRAM/SQ. METER, 1Q2W, C1D1
     Route: 042
     Dates: start: 20220519, end: 20220519
  2. GEMCITABINE [Suspect]
     Active Substance: GEMCITABINE
     Indication: Diffuse large B-cell lymphoma stage I
     Dosage: 1Q2W, C1D1
     Route: 042
     Dates: start: 20220519, end: 20220519
  3. EPCORITAMAB [Suspect]
     Active Substance: EPCORITAMAB
     Indication: Diffuse large B-cell lymphoma stage I
     Dosage: PRIMING DOSE: 0.16 MILLIGRAM, SINGLE
     Route: 058
     Dates: start: 20220519, end: 20220519
  4. CLEMASTINE FUMARATE [Concomitant]
     Active Substance: CLEMASTINE FUMARATE
     Dates: start: 20220630, end: 20220707
  5. ACETAMINOPHEN [Concomitant]
     Active Substance: ACETAMINOPHEN
     Dates: start: 20220630, end: 20220707
  6. ACYCLOVIR [Concomitant]
     Active Substance: ACYCLOVIR
     Dates: start: 20220519
  7. ALLOPURINOL [Concomitant]
     Active Substance: ALLOPURINOL
     Dates: start: 20220519
  8. BIOCLAVID [Concomitant]
     Active Substance: AMOXICILLIN\CLAVULANIC ACID
     Dates: start: 20220623, end: 20220630
  9. CILGAVIMAB\TIXAGEVIMAB [Concomitant]
     Active Substance: CILGAVIMAB\TIXAGEVIMAB
     Dates: start: 20220623, end: 20220623
  10. FURIX [Concomitant]
     Dates: start: 20220707, end: 20220707
  11. LOSARTAN POTASSIUM [Concomitant]
     Active Substance: LOSARTAN POTASSIUM
     Dates: start: 20220603
  12. MAGNYL [Concomitant]
     Dates: start: 20220602
  13. METOCLOPRAMIDE [Concomitant]
     Active Substance: METOCLOPRAMIDE
     Dates: start: 20220519
  14. ACETAMINOPHEN [Concomitant]
     Active Substance: ACETAMINOPHEN
     Dates: start: 20220404
  15. PEGFILGRASTIM [Concomitant]
     Active Substance: PEGFILGRASTIM
     Dates: start: 20220519, end: 20220710
  16. PREDNISOLONE [Concomitant]
     Active Substance: PREDNISOLONE
     Dates: start: 20220623, end: 20220626
  17. SULFAMETHOXAZOLE [Concomitant]
     Active Substance: SULFAMETHOXAZOLE
     Dates: start: 20220519
  18. VEKLURY [Concomitant]
     Active Substance: REMDESIVIR
     Dates: start: 20220711, end: 20220715
  19. MOVICOL [Concomitant]
     Active Substance: POLYETHYLENE GLYCOL 3350\POTASSIUM CHLORIDE\SODIUM BICARBONATE\SODIUM CHLORIDE
     Dates: start: 20220519
  20. ONDANSETRON [Concomitant]
     Active Substance: ONDANSETRON
     Dates: start: 20220519
  21. SOLU-MEDROL [Concomitant]
     Active Substance: METHYLPREDNISOLONE SODIUM SUCCINATE
     Dates: start: 20220616, end: 20220616
  22. GEMCITABINE [Suspect]
     Active Substance: GEMCITABINE
     Indication: Diffuse large B-cell lymphoma stage I
     Dosage: 1000 MILLIGRAM/SQ. METER, 1Q2W?C1D15
     Route: 042
     Dates: start: 20220619, end: 20220619
  23. GEMCITABINE [Suspect]
     Active Substance: GEMCITABINE
     Indication: Diffuse large B-cell lymphoma stage I
     Dosage: 1000 MILLIGRAM/SQ. METER, 1Q2W ?C2D1-ONWARDS
     Route: 042
     Dates: start: 20220623
  24. OXALIPLATIN [Suspect]
     Active Substance: OXALIPLATIN
     Indication: Diffuse large B-cell lymphoma stage I
     Dosage: 100 MILLIGRAM/SQ. METER, 1Q2W, C1D15
     Route: 042
     Dates: start: 20220609, end: 20220609
  25. OXALIPLATIN [Suspect]
     Active Substance: OXALIPLATIN
     Indication: Diffuse large B-cell lymphoma stage I
     Dosage: 100 MILLIGRAM/SQ. METER, 1Q2W, C2D1-ONWARDS
     Route: 042
     Dates: start: 20220623
  26. EPCORITAMAB [Suspect]
     Active Substance: EPCORITAMAB
     Indication: Diffuse large B-cell lymphoma stage I
     Dosage: INTERMEDIATE DOSE: 0.8 MILLIGRAM, SINGLE?C1D8
     Route: 058
     Dates: start: 20220527, end: 20220527
  27. EPCORITAMAB [Suspect]
     Active Substance: EPCORITAMAB
     Indication: Diffuse large B-cell lymphoma stage I
     Dosage: FULL DOSE: 24 MILLIGRAM, WEEKLY?C1D15-C2D8
     Route: 058
     Dates: start: 20220609, end: 20220630
  28. EPCORITAMAB [Suspect]
     Active Substance: EPCORITAMAB
     Indication: Diffuse large B-cell lymphoma stage I
     Dosage: FULL DOSE: 24 MILLIGRAM, WEEKLY?C2D15-C3D1
     Route: 058
     Dates: start: 20220708

REACTIONS (2)
  - Infusion related reaction [Recovered/Resolved]
  - Pyrexia [Recovered/Resolved]

NARRATIVE: CASE EVENT DATE: 20220707
